FAERS Safety Report 17649855 (Version 2)
Quarter: 2020Q2

REPORT INFORMATION
  Report Type: Report from Study
  Country: US (occurrence: US)
  Receive Date: 20200408
  Receipt Date: 20200411
  Transmission Date: 20200713
  Serious: No
  Sender: FDA-Public Use
  Company Number: NVSC2020US095158

PATIENT
  Sex: Female

DRUGS (1)
  1. AFINITOR [Suspect]
     Active Substance: EVEROLIMUS
     Indication: SPINAL PAIN
     Dosage: UNK
     Route: 065

REACTIONS (2)
  - Back pain [Unknown]
  - Product use in unapproved indication [Unknown]
